FAERS Safety Report 20548591 (Version 1)
Quarter: 2022Q1

REPORT INFORMATION
  Report Type: Spontaneous
  Country: ES (occurrence: ES)
  Receive Date: 20220303
  Receipt Date: 20220303
  Transmission Date: 20220423
  Serious: Yes (Other)
  Sender: FDA-Public Use
  Company Number: None

PATIENT
  Age: 56 Year
  Sex: Male

DRUGS (2)
  1. TALTZ [Suspect]
     Active Substance: IXEKIZUMAB
     Indication: Psoriasis
     Dosage: 160 MG, SINGLE, LOADING DOSE
     Route: 058
     Dates: start: 20220124, end: 20220214
  2. TALTZ [Suspect]
     Active Substance: IXEKIZUMAB
     Dosage: 80 MG, OTHER, WEEK 2, 4, 6, 8, 10 AND 12
     Route: 058
     Dates: start: 20220124, end: 20220214

REACTIONS (2)
  - Vaccination site induration [Recovering/Resolving]
  - Application site vesicles [Recovering/Resolving]

NARRATIVE: CASE EVENT DATE: 20220131
